FAERS Safety Report 11212094 (Version 1)
Quarter: 2015Q2

REPORT INFORMATION
  Report Type: Spontaneous
  Country: US (occurrence: None)
  Receive Date: 20150622
  Receipt Date: 20150622
  Transmission Date: 20150821
  Serious: Yes (Other)
  Sender: FDA-Public Use
  Company Number: None

PATIENT
  Age: 11 Year
  Sex: Male
  Weight: 53.98 kg

DRUGS (2)
  1. ARIPIPRAZOL [Suspect]
     Active Substance: ARIPIPRAZOLE
     Indication: PRODUCT USED FOR UNKNOWN INDICATION
     Route: 048
     Dates: start: 20150530
  2. ABILIFY [Concomitant]
     Active Substance: ARIPIPRAZOLE

REACTIONS (4)
  - Paranoia [None]
  - Mood swings [None]
  - Abnormal behaviour [None]
  - Irritability [None]

NARRATIVE: CASE EVENT DATE: 20150530
